FAERS Safety Report 25897531 (Version 1)
Quarter: 2025Q4

REPORT INFORMATION
  Report Type: Spontaneous
  Country: BR (occurrence: BR)
  Receive Date: 20251008
  Receipt Date: 20251008
  Transmission Date: 20260117
  Serious: Yes (Hospitalization, Other)
  Sender: NOVARTIS
  Company Number: BR-002147023-NVSC2025BR152846

PATIENT
  Sex: Female

DRUGS (2)
  1. NILOTINIB [Suspect]
     Active Substance: NILOTINIB
     Indication: Product used for unknown indication
     Dosage: 800 MG, QD
     Route: 065
  2. NILOTINIB [Suspect]
     Active Substance: NILOTINIB
     Dosage: 1 DOSAGE FORM, QD (FOR 15 DAYS)
     Route: 065

REACTIONS (12)
  - Melaena [Unknown]
  - Asthenia [Unknown]
  - Gastritis [Unknown]
  - Duodenitis [Unknown]
  - Pancytopenia [Unknown]
  - Febrile neutropenia [Unknown]
  - Thrombocytopenia [Unknown]
  - Haematotoxicity [Unknown]
  - Leukocytosis [Unknown]
  - Dyspnoea [Unknown]
  - Tremor [Unknown]
  - Anaemia [Unknown]
